FAERS Safety Report 25117441 (Version 1)
Quarter: 2025Q1

REPORT INFORMATION
  Report Type: Spontaneous
  Country: CN (occurrence: CN)
  Receive Date: 20250325
  Receipt Date: 20250325
  Transmission Date: 20250409
  Serious: Yes (Other)
  Sender: ROCHE
  Company Number: CN-ROCHE-10000238320

PATIENT
  Age: 59 Year
  Sex: Male

DRUGS (16)
  1. HERCEPTIN [Suspect]
     Active Substance: TRASTUZUMAB
     Indication: Gastric cancer
     Dosage: MAINTENANCE DOSE
     Route: 065
  2. HERCEPTIN [Suspect]
     Active Substance: TRASTUZUMAB
     Indication: Microsatellite instability cancer
     Dosage: LOADING DOSE
     Route: 065
  3. CAPECITABINE [Suspect]
     Active Substance: CAPECITABINE
     Indication: Gastric cancer
     Dosage: ON DAY 1-14
     Route: 065
  4. CAPECITABINE [Suspect]
     Active Substance: CAPECITABINE
     Indication: Microsatellite instability cancer
  5. OXALIPLATIN [Suspect]
     Active Substance: OXALIPLATIN
     Indication: Gastric cancer
     Dosage: DAY 1
     Route: 065
  6. OXALIPLATIN [Suspect]
     Active Substance: OXALIPLATIN
     Indication: Microsatellite instability cancer
  7. TS-1 [Suspect]
     Active Substance: GIMERACIL\OTERACIL POTASSIUM\TEGAFUR
     Indication: Gastric cancer
     Dosage: EVERY 3 WEEKS ON DAY 1-14
     Route: 065
  8. TS-1 [Suspect]
     Active Substance: GIMERACIL\OTERACIL POTASSIUM\TEGAFUR
     Indication: Microsatellite instability cancer
  9. PACLITAXEL [Suspect]
     Active Substance: PACLITAXEL
     Indication: Gastric cancer
     Dosage: ON DAY 1 AND DAY 8
     Route: 065
  10. PACLITAXEL [Suspect]
     Active Substance: PACLITAXEL
     Indication: Microsatellite instability cancer
  11. NIVOLUMAB [Suspect]
     Active Substance: NIVOLUMAB
     Indication: Gastric cancer
     Route: 065
  12. NIVOLUMAB [Suspect]
     Active Substance: NIVOLUMAB
     Indication: Microsatellite instability cancer
     Route: 065
  13. CADONILIMAB [Suspect]
     Active Substance: CADONILIMAB
     Indication: Gastric cancer
     Route: 065
  14. CADONILIMAB [Suspect]
     Active Substance: CADONILIMAB
     Indication: Microsatellite instability cancer
  15. RIVOCERANIB [Suspect]
     Active Substance: RIVOCERANIB
     Indication: Gastric cancer
     Route: 065
  16. RIVOCERANIB [Suspect]
     Active Substance: RIVOCERANIB
     Indication: Microsatellite instability cancer

REACTIONS (3)
  - Disease progression [Recovered/Resolved]
  - Drug ineffective [Unknown]
  - Off label use [Unknown]

NARRATIVE: CASE EVENT DATE: 20201201
